FAERS Safety Report 16021918 (Version 1)
Quarter: 2019Q1

REPORT INFORMATION
  Report Type: Report from Study
  Country: AU (occurrence: AU)
  Receive Date: 20190301
  Receipt Date: 20190301
  Transmission Date: 20190418
  Serious: Yes (Hospitalization, Other)
  Sender: FDA-Public Use
  Company Number: AU-REGENERON PHARMACEUTICALS, INC.-2019-18683

PATIENT

DRUGS (1)
  1. EYLEA [Suspect]
     Active Substance: AFLIBERCEPT
     Indication: PRODUCT USED FOR UNKNOWN INDICATION
     Dosage: RIGHT EYE, EVERY 9 - 10 WEEKS
     Route: 031
     Dates: start: 20170118

REACTIONS (9)
  - Eye swelling [Unknown]
  - Internal haemorrhage [Unknown]
  - Blindness transient [Recovered/Resolved]
  - Eyelid ptosis [Not Recovered/Not Resolved]
  - Visual impairment [Unknown]
  - Eye injury [Unknown]
  - Eye disorder [Not Recovered/Not Resolved]
  - Injection site discomfort [Recovered/Resolved]
  - Eye pain [Unknown]

NARRATIVE: CASE EVENT DATE: 2018
